FAERS Safety Report 13901613 (Version 1)
Quarter: 2017Q3

REPORT INFORMATION
  Report Type: Spontaneous
  Country: US (occurrence: US)
  Receive Date: 20170824
  Receipt Date: 20170824
  Transmission Date: 20171127
  Serious: Yes (Other)
  Sender: FDA-Public Use
  Company Number: PHEH2017US026410

PATIENT
  Age: 15 Year
  Sex: Female
  Weight: 52.15 kg

DRUGS (2)
  1. NORDITROPIN [Suspect]
     Active Substance: SOMATROPIN
     Indication: TURNER^S SYNDROME
     Dosage: UNK
     Route: 058
  2. VIVELLE [Suspect]
     Active Substance: ESTRADIOL
     Indication: TURNER^S SYNDROME
     Dosage: 0.02 MG, BID
     Route: 062

REACTIONS (1)
  - Scoliosis [Recovering/Resolving]
